FAERS Safety Report 10590252 (Version 1)
Quarter: 2014Q4

REPORT INFORMATION
  Report Type: Spontaneous
  Country: US (occurrence: None)
  Receive Date: 20141117
  Receipt Date: 20141117
  Transmission Date: 20150529
  Serious: No
  Sender: FDA-Public Use
  Company Number: None

PATIENT
  Age: 72 Year
  Sex: Female
  Weight: 75.3 kg

DRUGS (2)
  1. CLINDAMYCIN 300MG [Suspect]
     Active Substance: CLINDAMYCIN PHOSPHATE
     Indication: INFECTION
     Dosage: 1 PILL
     Route: 048
     Dates: start: 20141105, end: 20141114
  2. CLINDAMYCIN 300MG [Suspect]
     Active Substance: CLINDAMYCIN PHOSPHATE
     Indication: LACERATION
     Dosage: 1 PILL
     Route: 048
     Dates: start: 20141105, end: 20141114

REACTIONS (2)
  - Back pain [None]
  - Gait disturbance [None]

NARRATIVE: CASE EVENT DATE: 20141105
